FAERS Safety Report 6566219-9 (Version None)
Quarter: 2010Q1

REPORT INFORMATION
  Report Type: 
  Country: None (occurrence: None)
  Receive Date: 20100202
  Receipt Date: 20100125
  Transmission Date: 20100710
  Serious: Yes (Other)
  Sender: FDA-Public Use
  Company Number: US-PFIZER INC-2010010776

PATIENT
  Sex: Female

DRUGS (2)
  1. CHANTIX [Suspect]
     Indication: SMOKING CESSATION THERAPY
     Dosage: 1 MG, 1X/DAY
     Route: 048
     Dates: start: 20091201, end: 20100101
  2. TRAMADOL [Concomitant]
     Indication: PAIN
     Dosage: UNK

REACTIONS (3)
  - RASH [None]
  - SKIN EXFOLIATION [None]
  - SWELLING FACE [None]
